FAERS Safety Report 4751563-8 (Version None)
Quarter: 2005Q3

REPORT INFORMATION
  Report Type: 
  Country: None (occurrence: None)
  Receive Date: 20050824
  Receipt Date: 20050822
  Transmission Date: 20060218
  Serious: Yes (Hospitalization)
  Sender: FDA-Public Use
  Company Number: US-2005-013003

PATIENT
  Age: 49 Year
  Sex: Female
  Weight: 73.5 kg

DRUGS (23)
  1. WELLBUTRIN XL [Suspect]
     Indication: DRUG USE FOR UNKNOWN INDICATION
     Route: 048
  2. BETASERON [Suspect]
     Indication: MULTIPLE SCLEROSIS
     Dosage: 8MU ALTERNATE DAYS
     Route: 058
     Dates: start: 20030601
  3. SYNTHROID [Concomitant]
     Route: 065
  4. KLOR-CON [Concomitant]
     Route: 065
  5. AMANTADINE [Concomitant]
     Route: 065
  6. BACLOFEN [Concomitant]
     Route: 065
  7. CARISOPRODOL [Concomitant]
     Route: 065
  8. PHENYTOIN SODIUM CAP [Concomitant]
     Route: 065
  9. EFFEXOR XR [Concomitant]
     Route: 065
  10. METHOTREXATE [Concomitant]
     Route: 065
  11. AMBIEN [Concomitant]
     Route: 065
  12. ASPIRIN [Concomitant]
     Route: 065
  13. CALCIUM GLUCONATE [Concomitant]
     Route: 065
  14. MULTI-VITAMINS [Concomitant]
     Route: 065
  15. ESSENTIALE [Concomitant]
     Route: 065
  16. ASCORBIC ACID [Concomitant]
     Route: 065
  17. VITAMIN E [Concomitant]
     Route: 065
  18. DOCUSATE [Concomitant]
     Route: 065
  19. SENNA [Concomitant]
     Route: 065
  20. ALEVE [Concomitant]
     Route: 065
  21. NYQUIL [Concomitant]
     Route: 065
  22. SIMETHICONE [Concomitant]
     Route: 065
  23. FOSAMAX [Concomitant]

REACTIONS (4)
  - ASTHENIA [None]
  - CONVULSION [None]
  - FATIGUE [None]
  - MULTIPLE SCLEROSIS [None]
